FAERS Safety Report 21342024 (Version 4)
Quarter: 2022Q4

REPORT INFORMATION
  Report Type: Spontaneous
  Country: FR (occurrence: FR)
  Receive Date: 20220916
  Receipt Date: 20221026
  Transmission Date: 20230112
  Serious: Yes (Life-Threatening, Other)
  Sender: FDA-Public Use
  Company Number: None

PATIENT
  Age: 4 Month
  Sex: Male
  Weight: 6.8 kg

DRUGS (15)
  1. METHYLPREDNISOLONE SODIUM SUCCINATE [Interacting]
     Active Substance: METHYLPREDNISOLONE SODIUM SUCCINATE
     Indication: Meningitis
     Dosage: 2MG/KG, QD
     Route: 042
     Dates: start: 20220727
  2. HEPARIN SODIUM [Interacting]
     Active Substance: HEPARIN SODIUM
     Indication: Cerebral thrombosis
     Dosage: 5000 IU/0.2 ML/BOLUS 2X50 IU/KG AND IVSE 10 IU KG/HOUR
     Route: 042
     Dates: start: 20220803, end: 20220804
  3. LEVETIRACETAM [Concomitant]
     Active Substance: LEVETIRACETAM
     Indication: Seizure
     Dosage: 20 MG/KG
  4. LEVETIRACETAM [Concomitant]
     Active Substance: LEVETIRACETAM
     Dosage: 40 MG/KG
  5. MORPHINE SULFATE [Concomitant]
     Active Substance: MORPHINE SULFATE
     Dates: start: 20220726
  6. TRACRIUM [Concomitant]
     Active Substance: ATRACURIUM BESYLATE
     Dosage: 0.6MG/KG X2 NIGHT
     Dates: start: 20220726
  7. CLAFORAN GALAXY [Concomitant]
     Dates: start: 20220726
  8. SUFENTANIL [Concomitant]
     Active Substance: SUFENTANIL
     Dosage: 0.3 UG/KG/H
     Dates: start: 20220726
  9. PHENYTOIN [Concomitant]
     Active Substance: PHENYTOIN
     Indication: Seizure
     Dosage: 1ST DOSE
     Dates: start: 20220728
  10. PHENYTOIN [Concomitant]
     Active Substance: PHENYTOIN
     Dosage: H6 DOSAGE OF MAINTENANCE AT 10 MG/L AND NO RE-INJECTION SINCE BECAUSE OF THE ABSENCE OF RECURRENCE
     Dates: start: 20220729
  11. RIVOTRIL [Concomitant]
     Active Substance: CLONAZEPAM
     Indication: Seizure
  12. MIDAZOLAM [Concomitant]
     Active Substance: MIDAZOLAM
     Indication: Seizure
     Dosage: INCREASE IN HYPNOVEL TO 400 ?G/KG/H
  13. RIFAMPIN [Concomitant]
     Active Substance: RIFAMPIN
     Indication: Meningitis pneumococcal
  14. CEFOTAXIME [Concomitant]
     Active Substance: CEFOTAXIME SODIUM
     Indication: Meningitis pneumococcal
  15. ACYCLOVIR [Concomitant]
     Active Substance: ACYCLOVIR
     Dates: start: 20220726

REACTIONS (6)
  - Cerebral haemorrhage [Not Recovered/Not Resolved]
  - Drug abuse [Unknown]
  - Drug interaction [Recovered/Resolved]
  - Accidental overdose [Recovered/Resolved]
  - Off label use [Unknown]
  - Intentional product misuse [Unknown]

NARRATIVE: CASE EVENT DATE: 20220803
